FAERS Safety Report 7215859-2 (Version None)
Quarter: 2011Q1

REPORT INFORMATION
  Report Type: 
  Country: None (occurrence: None)
  Receive Date: 20110107
  Receipt Date: 20101228
  Transmission Date: 20110831
  Serious: Yes (Other)
  Sender: FDA-Public Use
  Company Number: PHHY2008JP11856

PATIENT
  Sex: Male

DRUGS (5)
  1. NEORAL [Suspect]
     Dosage: 300 MG/DAY
     Route: 048
     Dates: start: 20031002, end: 20050124
  2. MYCOPHENOLATE MOFETIL [Concomitant]
     Indication: HEART TRANSPLANT
     Dosage: UNK
     Route: 048
     Dates: start: 20020120, end: 20050124
  3. NEORAL [Suspect]
     Dosage: 350 MG/DAY
     Route: 048
     Dates: start: 20000121, end: 20031001
  4. CERTICAN [Concomitant]
     Indication: HEART TRANSPLANT
     Dosage: UNK
     Route: 048
     Dates: start: 20070701
  5. NEORAL [Suspect]
     Indication: HEART TRANSPLANT
     Dosage: 400 MG/DAY
     Route: 048
     Dates: start: 19990312, end: 20000120

REACTIONS (6)
  - BLOOD CREATININE INCREASED [None]
  - COMPLICATIONS OF TRANSPLANTED HEART [None]
  - CORONARY ARTERY DISEASE [None]
  - VIITH NERVE PARALYSIS [None]
  - MELAENA [None]
  - RENAL FAILURE [None]
